FAERS Safety Report 18094965 (Version 1)
Quarter: 2020Q3

REPORT INFORMATION
  Report Type: Spontaneous
  Country: None (occurrence: None)
  Receive Date: 20200731
  Receipt Date: 20200731
  Transmission Date: 20201103
  Serious: Yes (Other)
  Sender: FDA-Public Use
  Company Number: VISTAPHARM, INC.-VER202007-001318

PATIENT
  Age: 70 Year
  Sex: Male

DRUGS (1)
  1. PREDNISOLONE. [Suspect]
     Active Substance: PREDNISOLONE
     Indication: ADRENAL INSUFFICIENCY
     Dosage: 15 MG
     Route: 048

REACTIONS (1)
  - Kaposi^s sarcoma [Recovered/Resolved]
